FAERS Safety Report 18561106 (Version 2)
Quarter: 2020Q4

REPORT INFORMATION
  Report Type: Spontaneous
  Country: US (occurrence: US)
  Receive Date: 20201130
  Receipt Date: 20201209
  Transmission Date: 20210114
  Serious: Yes (Other)
  Sender: FDA-Public Use
  Company Number: US-TAKEDA-US-001070

PATIENT
  Sex: Female

DRUGS (19)
  1. GATTEX [Suspect]
     Active Substance: TEDUGLUTIDE\WATER
     Dosage: DOSE WAS DECREASED TO HALF OF THE PRESCRIBED DOSE, EVERY OTHER DAY
     Route: 058
     Dates: start: 2014, end: 201406
  2. GATTEX [Suspect]
     Active Substance: TEDUGLUTIDE\WATER
     Dosage: 5 MILLIGRAM
     Route: 065
  3. GABAPENTIN. [Concomitant]
     Active Substance: GABAPENTIN
     Indication: NEURALGIA
     Dosage: STREN/VOLUM: 600 MG|FREQU: THREE TIMES A DAY
  4. VITAMIN D3 [Concomitant]
     Active Substance: CHOLECALCIFEROL
     Indication: VITAMIN SUPPLEMENTATION
     Dosage: STREN/VOLUM: 1 TABLET|FREQU: ONCE A DAY
  5. GATTEX [Suspect]
     Active Substance: TEDUGLUTIDE\WATER
     Dosage: DOSE WAS DECREASED TO HALF OF THE PRESCRIBED DOSE, EVERY OTHER DAY
     Route: 058
     Dates: start: 2014, end: 201406
  6. GATTEX [Suspect]
     Active Substance: TEDUGLUTIDE\WATER
     Dosage: 5 MILLIGRAM
     Route: 065
  7. GATTEX [Suspect]
     Active Substance: TEDUGLUTIDE\WATER
     Dosage: DOSE WAS DECREASED TO HALF OF THE PRESCRIBED DOSE, EVERY OTHER DAY
     Route: 058
     Dates: start: 2014, end: 201406
  8. GATTEX [Suspect]
     Active Substance: TEDUGLUTIDE\WATER
     Dosage: 5 MILLIGRAM
     Route: 065
  9. GATTEX [Suspect]
     Active Substance: TEDUGLUTIDE\WATER
     Indication: SHORT-BOWEL SYNDROME
     Dosage: STREN/VOLUM: 0.215 ML|FREQU: ONCE A DAY
     Route: 058
     Dates: start: 201404, end: 2014
  10. GATTEX [Suspect]
     Active Substance: TEDUGLUTIDE\WATER
     Indication: SHORT-BOWEL SYNDROME
     Dosage: STREN/VOLUM: 0.215 ML|FREQU: ONCE A DAY
     Route: 058
     Dates: start: 201404, end: 2014
  11. GATTEX [Suspect]
     Active Substance: TEDUGLUTIDE\WATER
     Dosage: 5 MILLIGRAM
     Route: 065
  12. SOMA [Concomitant]
     Active Substance: CARISOPRODOL
     Indication: ANXIETY
     Dosage: STREN/VOLUM: 1 TABLET|FREQU: THREE TIMES A DAY
  13. GATTEX [Suspect]
     Active Substance: TEDUGLUTIDE\WATER
     Indication: SHORT-BOWEL SYNDROME
     Dosage: STREN/VOLUM: 0.215 ML|FREQU: ONCE A DAY
     Route: 058
     Dates: start: 201404, end: 2014
  14. FENTANYL TRANSDERMAL SYSTEM [Concomitant]
     Active Substance: FENTANYL
     Indication: PAIN
     Dosage: STREN/VOLUM: 50 MCG|FREQU: CHANGE EVERY OTHER DAY
  15. SYNTHROID [Concomitant]
     Active Substance: LEVOTHYROXINE SODIUM
     Indication: HYPOTHYROIDISM
     Dosage: STREN/VOLUM: 0.15 MCG|FREQU: ONCE A DAY
  16. TPN NO.2 [Concomitant]
     Indication: MEDICAL DIET
     Dosage: DF
  17. GATTEX [Suspect]
     Active Substance: TEDUGLUTIDE\WATER
     Indication: SHORT-BOWEL SYNDROME
     Dosage: STREN/VOLUM: 0.215 ML|FREQU: ONCE A DAY
     Route: 058
     Dates: start: 201404, end: 2014
  18. GATTEX [Suspect]
     Active Substance: TEDUGLUTIDE\WATER
     Dosage: DOSE WAS DECREASED TO HALF OF THE PRESCRIBED DOSE, EVERY OTHER DAY
     Route: 058
     Dates: start: 2014, end: 201406
  19. AVONEX [Concomitant]
     Active Substance: INTERFERON BETA-1A
     Indication: MULTIPLE SCLEROSIS
     Dosage: STREN/VOLUM: 1 INJECTION|FREQU: ONCE A WEEK

REACTIONS (2)
  - Depression [Not Recovered/Not Resolved]
  - Abdominal distension [Not Recovered/Not Resolved]

NARRATIVE: CASE EVENT DATE: 2014
